FAERS Safety Report 10996801 (Version 1)
Quarter: 2015Q1

REPORT INFORMATION
  Report Type: Spontaneous
  Country: US (occurrence: None)
  Receive Date: 20150331
  Receipt Date: 20150331
  Transmission Date: 20150721
  Serious: Yes (Hospitalization)
  Sender: FDA-Public Use
  Company Number: PHEH2014US022202

PATIENT
  Age: 82 Year
  Sex: Male

DRUGS (1)
  1. TASIGNA [Suspect]
     Active Substance: NILOTINIB
     Indication: CHRONIC MYELOID LEUKAEMIA
     Dosage: 400 MG, TWO CAPSULES DAILY
     Dates: start: 20140826

REACTIONS (7)
  - Pancreatitis [None]
  - Arthralgia [None]
  - Headache [None]
  - Myalgia [None]
  - Nausea [None]
  - Fatigue [None]
  - Sleep disorder [None]

NARRATIVE: CASE EVENT DATE: 20141007
